FAERS Safety Report 8484670-7 (Version None)
Quarter: 2012Q3

REPORT INFORMATION
  Report Type: 
  Country: None (occurrence: None)
  Receive Date: 20120703
  Receipt Date: 20120624
  Transmission Date: 20120928
  Serious: Yes (Death, Hospitalization)
  Sender: FDA-Public Use
  Company Number: CA-BRISTOL-MYERS SQUIBB COMPANY-16709388

PATIENT
  Age: 72 Year
  Sex: Male

DRUGS (2)
  1. PEMETREXED DISODIUM [Suspect]
     Indication: PERICARDIAL MESOTHELIOMA MALIGNANT ADVANCED
     Dates: start: 20100101
  2. CISPLATIN [Suspect]
     Indication: PERICARDIAL MESOTHELIOMA MALIGNANT ADVANCED
     Dates: start: 20100101

REACTIONS (2)
  - RENAL FAILURE ACUTE [None]
  - DEATH [None]
